FAERS Safety Report 7220267-4 (Version None)
Quarter: 2011Q1

REPORT INFORMATION
  Report Type: 
  Country: None (occurrence: None)
  Receive Date: 20110111
  Receipt Date: 20101227
  Transmission Date: 20110831
  Serious: Yes (Other)
  Sender: FDA-Public Use
  Company Number: DE-CUBIST-2010S1001351

PATIENT
  Age: 78 Year
  Sex: Male
  Weight: 60 kg

DRUGS (3)
  1. CUBICIN [Suspect]
     Indication: BACTERIAL INFECTION
     Route: 042
     Dates: end: 20090101
  2. METRONIDAZOLE [Concomitant]
     Indication: BACTERIAL INFECTION
  3. PENICILLIN [Concomitant]
     Indication: BACTERIAL INFECTION

REACTIONS (3)
  - ARRHYTHMIA [None]
  - CONCOMITANT DISEASE PROGRESSION [None]
  - CARDIAC FAILURE [None]
